FAERS Safety Report 8600205-X (Version None)
Quarter: 2012Q3

REPORT INFORMATION
  Report Type: 
  Country: None (occurrence: None)
  Receive Date: 20120817
  Receipt Date: 20120809
  Transmission Date: 20120928
  Serious: No
  Sender: FDA-Public Use
  Company Number: US-BIOGENIDEC-2012BI018069

PATIENT
  Age: 31 Year
  Sex: Female

DRUGS (2)
  1. AVONEX [Concomitant]
     Route: 030
  2. TYSABRI [Suspect]
     Indication: MULTIPLE SCLEROSIS
     Route: 042
     Dates: start: 20120424, end: 20120522

REACTIONS (7)
  - FATIGUE [None]
  - UNDERDOSE [None]
  - HYPERSENSITIVITY [None]
  - MULTIPLE SCLEROSIS RELAPSE [None]
  - FEELING HOT [None]
  - BLINDNESS [None]
  - PAIN [None]
